FAERS Safety Report 6346642-8 (Version None)
Quarter: 2009Q3

REPORT INFORMATION
  Report Type: 
  Country: None (occurrence: None)
  Receive Date: 20090902
  Receipt Date: 20090825
  Transmission Date: 20100115
  Serious: Yes (Other)
  Sender: FDA-Public Use
  Company Number: CHNY2009IE02871

PATIENT
  Age: 44 Year
  Sex: Female
  Weight: 67.1 kg

DRUGS (9)
  1. HYOSCINE HBR HYT [Suspect]
     Indication: PNEUMONIA ASPIRATION
     Dosage: TRANSDERMAL
     Route: 062
     Dates: start: 20090601
  2. INNOHEP (TINZAPARIN SODIUM) (HEPARIN-FRACTION, SODIUM SALT, TINZAPARIN [Concomitant]
  3. TOLTERODINE TARTRATE [Concomitant]
  4. THIAMINE (THIAMINE) [Concomitant]
  5. ATROVENT [Concomitant]
  6. LANSOPRAZOLE [Concomitant]
  7. MOVICOL (MACROGOL, POTASSIUM CHLORIDE, SODIUM BICARBONATE, SODIUM CHLO [Concomitant]
  8. SENOKOT /UNK/ (SENNA ALEXANDRINA FRUIT) [Concomitant]
  9. BECONASE [Concomitant]

REACTIONS (7)
  - APPLICATION SITE ERYTHEMA [None]
  - APPLICATION SITE HYPERSENSITIVITY [None]
  - APPLICATION SITE INFLAMMATION [None]
  - APPLICATION SITE IRRITATION [None]
  - DERMATITIS ALLERGIC [None]
  - OFF LABEL USE [None]
  - THERAPEUTIC RESPONSE UNEXPECTED [None]
